FAERS Safety Report 16576582 (Version 1)
Quarter: 2019Q3

REPORT INFORMATION
  Report Type: Other
  Country: FR (occurrence: FR)
  Receive Date: 20190716
  Receipt Date: 20190716
  Transmission Date: 20191004
  Serious: Yes (Hospitalization, Other)
  Sender: FDA-Public Use
  Company Number: FR-ASTELLAS-2019US028401

PATIENT
  Age: 72 Year
  Sex: Female
  Weight: 48 kg

DRUGS (6)
  1. PROGRAF [Suspect]
     Active Substance: TACROLIMUS\TACROLIMUS ANHYDROUS
     Indication: HEART TRANSPLANT
     Route: 048
     Dates: start: 2007, end: 20190529
  2. BACTRIM [Suspect]
     Active Substance: SULFAMETHOXAZOLE\TRIMETHOPRIM
     Indication: PNEUMOCYSTIS JIROVECII PNEUMONIA
     Route: 042
     Dates: start: 20190522, end: 20190531
  3. ERYTHROCINE                        /00020905/ [Suspect]
     Active Substance: ERYTHROMYCIN LACTOBIONATE
     Indication: IMPAIRED GASTRIC EMPTYING
     Route: 042
     Dates: start: 20190527, end: 20190603
  4. PIPERACILLINE [Suspect]
     Active Substance: PIPERACILLIN SODIUM
     Indication: INFECTION
     Route: 042
     Dates: start: 20190523, end: 20190527
  5. CERTICAN [Suspect]
     Active Substance: EVEROLIMUS
     Indication: HEART TRANSPLANT
     Route: 048
     Dates: start: 2007, end: 20190529
  6. TAZOBACTAM [Suspect]
     Active Substance: TAZOBACTAM
     Indication: INFECTION
     Route: 042
     Dates: start: 20190523, end: 20190527

REACTIONS (2)
  - Immunosuppressant drug level increased [Recovered/Resolved]
  - Thrombotic microangiopathy [Recovering/Resolving]

NARRATIVE: CASE EVENT DATE: 20190527
